FAERS Safety Report 17104520 (Version 1)
Quarter: 2019Q4

REPORT INFORMATION
  Report Type: Spontaneous
  Country: US (occurrence: US)
  Receive Date: 20191107
  Receipt Date: 20191107
  Transmission Date: 20200122
  Serious: No
  Sender: FDA-Public Use
  Company Number: None

PATIENT
  Age: 55 Year
  Sex: Female

DRUGS (1)
  1. COSENTYX [Suspect]
     Active Substance: SECUKINUMAB
     Indication: PSORIATIC ARTHROPATHY
     Route: 058
     Dates: start: 20181026, end: 20190417

REACTIONS (5)
  - Oral candidiasis [None]
  - Psoriasis [None]
  - Oral mucosal blistering [None]
  - Discomfort [None]
  - Cough [None]

NARRATIVE: CASE EVENT DATE: 20181026
